FAERS Safety Report 7860014-6 (Version None)
Quarter: 2011Q4

REPORT INFORMATION
  Report Type: 
  Country: None (occurrence: None)
  Receive Date: 20111025
  Receipt Date: 20111017
  Transmission Date: 20120403
  Serious: Yes (Other)
  Sender: FDA-Public Use
  Company Number: LEO-2011-00839

PATIENT
  Sex: Male

DRUGS (1)
  1. DOVONEX [Suspect]
     Indication: PRODUCT USED FOR UNKNOWN INDICATION
     Dosage: (2 IN 1 D)

REACTIONS (3)
  - HOMICIDAL IDEATION [None]
  - VIOLENCE-RELATED SYMPTOM [None]
  - THINKING ABNORMAL [None]
